FAERS Safety Report 4895866-5 (Version None)
Quarter: 2006Q1

REPORT INFORMATION
  Report Type: 
  Country: None (occurrence: None)
  Receive Date: 20060130
  Receipt Date: 20051130
  Transmission Date: 20060701
  Serious: Yes (Hospitalization, Other)
  Sender: FDA-Public Use
  Company Number: NZ-NOVOPROD-249063

PATIENT
  Age: 6 Year
  Sex: Female
  Weight: 15 kg

DRUGS (1)
  1. NORDITROPIN SIMPLEXX [Suspect]
     Indication: BODY HEIGHT BELOW NORMAL
     Dates: start: 20000126, end: 20010501

REACTIONS (3)
  - BENIGN NEOPLASM OF SPINAL CORD [None]
  - CONDITION AGGRAVATED [None]
  - CONGENITAL SPINAL CORD ANOMALY [None]
